FAERS Safety Report 8255246-1 (Version None)
Quarter: 2012Q1

REPORT INFORMATION
  Report Type: 
  Country: None (occurrence: None)
  Receive Date: 20120329
  Receipt Date: 20120316
  Transmission Date: 20120608
  Serious: Yes (Hospitalization, Other)
  Sender: FDA-Public Use
  Company Number: JP-1190632

PATIENT
  Age: 62 Year
  Sex: Male
  Weight: 83 kg

DRUGS (13)
  1. MUCOSTA [Concomitant]
  2. PRAVASTATIN SODIUM [Concomitant]
  3. SENNOSIDE [Concomitant]
  4. ZOLPIDEM [Concomitant]
  5. MAGNESIUM OXIDE [Concomitant]
  6. SYMMETREL [Concomitant]
  7. CANDESARTAN CILEXETIL [Concomitant]
  8. VESICARE [Concomitant]
  9. FAMOTIDINE [Concomitant]
  10. FLUORESCITE [Suspect]
     Indication: ANGIOGRAM RETINA
     Dosage: (3 ML INTRAVENOUS BOLUS)
     Route: 040
     Dates: start: 20120203, end: 20120203
  11. ASPIRIN [Concomitant]
  12. AMLODIPINE [Concomitant]
  13. ACTOS [Concomitant]

REACTIONS (4)
  - ASTHENIA [None]
  - ANAPHYLACTIC REACTION [None]
  - DISSEMINATED INTRAVASCULAR COAGULATION [None]
  - RENAL FAILURE [None]
